FAERS Safety Report 9165388 (Version 1)
Quarter: 2013Q1

REPORT INFORMATION
  Report Type: Spontaneous
  Country: GB (occurrence: None)
  Receive Date: 20130301
  Receipt Date: 20130301
  Transmission Date: 20140127
  Serious: Yes (Life-Threatening)
  Sender: FDA-Public Use
  Company Number: TPA2013A01734

PATIENT
  Age: 58 Year
  Sex: Female

DRUGS (3)
  1. ADENURIC (FEBUXOSTAT) [Suspect]
     Indication: HYPERURICAEMIA
     Route: 048
     Dates: start: 20130111, end: 20130125
  2. PERINDOPRIL (PERINDOPRIL) [Concomitant]
  3. PRAVASTATIN (PRAVASTATIN) [Concomitant]

REACTIONS (3)
  - Rash maculo-papular [None]
  - Eyelid oedema [None]
  - Lip swelling [None]
